FAERS Safety Report 9389046 (Version 1)
Quarter: 2013Q3

REPORT INFORMATION
  Report Type: Spontaneous
  Country: TR (occurrence: TR)
  Receive Date: 20130708
  Receipt Date: 20130708
  Transmission Date: 20140515
  Serious: Yes (Other)
  Sender: FDA-Public Use
  Company Number: TR-BAXTER-2013BAX025441

PATIENT
  Age: 5 Year
  Sex: Female
  Weight: 20 kg

DRUGS (1)
  1. RHEOMACRODEX %10 IZOTONIK NACL [Suspect]
     Indication: DEAFNESS
     Route: 042
     Dates: start: 20130607, end: 20130607

REACTIONS (4)
  - Cough [Recovered/Resolved]
  - Nausea [Recovered/Resolved]
  - Generalised erythema [Recovered/Resolved]
  - Ocular hyperaemia [Recovered/Resolved]
